FAERS Safety Report 17031575 (Version 1)
Quarter: 2019Q4

REPORT INFORMATION
  Report Type: Spontaneous
  Country: US (occurrence: US)
  Receive Date: 20191114
  Receipt Date: 20191114
  Transmission Date: 20200122
  Serious: No
  Sender: FDA-Public Use
  Company Number: US-PFIZER INC-2019491945

PATIENT
  Sex: Male

DRUGS (4)
  1. VALIUM [Suspect]
     Active Substance: DIAZEPAM
     Indication: PANIC DISORDER
     Dosage: UNK
  2. ALPRAZOLAM. [Suspect]
     Active Substance: ALPRAZOLAM
     Indication: PANIC DISORDER
     Dosage: UNK
  3. ALPRAZOLAM. [Suspect]
     Active Substance: ALPRAZOLAM
     Indication: OBSESSIVE-COMPULSIVE DISORDER
  4. VALIUM [Suspect]
     Active Substance: DIAZEPAM
     Indication: OBSESSIVE-COMPULSIVE DISORDER

REACTIONS (1)
  - Drug ineffective [Unknown]
